FAERS Safety Report 5108806-0 (Version None)
Quarter: 2006Q3

REPORT INFORMATION
  Report Type: 
  Country: None (occurrence: None)
  Receive Date: 20060920
  Receipt Date: 20050517
  Transmission Date: 20061208
  Serious: Yes (Other)
  Sender: FDA-Public Use
  Company Number: US-BAYER-200510992BWH

PATIENT
  Age: 61 Year
  Sex: Male

DRUGS (7)
  1. LEVITRA [Suspect]
     Indication: ERECTILE DYSFUNCTION
     Dosage: AS USED: 10 MG  UNIT DOSE: 10 MG
     Route: 048
     Dates: start: 20050201
  2. LEVITRA [Suspect]
     Dosage: AS USED: 20 MG  UNIT DOSE: 20 MG
     Route: 048
  3. LEVITRA [Suspect]
     Dosage: AS USED: 10 MG  UNIT DOSE: 20 MG
     Route: 048
     Dates: start: 20050523
  4. LEVITRA [Suspect]
     Dosage: AS USED: 5 MG  UNIT DOSE: 5 MG
     Route: 048
     Dates: start: 20050529
  5. LEVITRA [Suspect]
     Dosage: AS USED: 10 MG  UNIT DOSE: 20 MG
     Route: 048
     Dates: start: 20050525
  6. LEVITRA [Suspect]
     Dosage: AS USED: 10 MG  UNIT DOSE: 20 MG
     Route: 048
     Dates: start: 20050522
  7. ASPIRIN [Concomitant]
     Dosage: AS USED: 325 MG  UNIT DOSE: 325 MG

REACTIONS (8)
  - BLINDNESS TRANSIENT [None]
  - ERECTILE DYSFUNCTION [None]
  - EYE DISORDER [None]
  - MIGRAINE WITH AURA [None]
  - PHOTOPSIA [None]
  - SCINTILLATING SCOTOMA [None]
  - TIC [None]
  - VISUAL ACUITY REDUCED [None]
